FAERS Safety Report 6822794-8 (Version None)
Quarter: 2010Q3

REPORT INFORMATION
  Report Type: 
  Country: None (occurrence: None)
  Receive Date: 20100708
  Receipt Date: 20100703
  Transmission Date: 20110219
  Serious: Yes (Death)
  Sender: FDA-Public Use
  Company Number: CO-ROCHE-713140

PATIENT
  Sex: Female

DRUGS (3)
  1. AVASTIN [Suspect]
     Indication: COLORECTAL CANCER
     Dosage: FORM: INFUSION; FREQUENCY: Q14DAYS.
     Route: 042
     Dates: start: 20100529, end: 20100611
  2. TRAMADOL [Concomitant]
     Indication: PAIN
     Dosage: DOSE: DROPS, FREQUENCY: PRN
     Route: 048
  3. ACETAMINOPHEN [Concomitant]
     Indication: PAIN
     Dosage: FREQUENCY: QID.
     Route: 048

REACTIONS (1)
  - DISEASE PROGRESSION [None]
